FAERS Safety Report 7957137-X (Version None)
Quarter: 2011Q4

REPORT INFORMATION
  Report Type: 
  Country: None (occurrence: None)
  Receive Date: 20111205
  Receipt Date: 20111123
  Transmission Date: 20120403
  Serious: Yes (Hospitalization)
  Sender: FDA-Public Use
  Company Number: IE-MEDIMMUNE-MEDI-0013986

PATIENT
  Sex: Male
  Weight: 9.68 kg

DRUGS (6)
  1. LACTOSE [Concomitant]
  2. DOSENTAN [Concomitant]
  3. FERROUS SULFATE TAB [Concomitant]
  4. ERGOCALCIFEROL [Concomitant]
  5. SYNAGIS [Suspect]
     Route: 030
     Dates: start: 20111026, end: 20111026
  6. SILDENAFIL [Concomitant]

REACTIONS (2)
  - KIDNEY INFECTION [None]
  - RHINORRHOEA [None]
